FAERS Safety Report 17005096 (Version 1)
Quarter: 2019Q4

REPORT INFORMATION
  Report Type: Spontaneous
  Country: US (occurrence: US)
  Receive Date: 20190926
  Receipt Date: 20190926
  Transmission Date: 20200122
  Serious: Yes (Other)
  Sender: FDA-Public Use
  Company Number: None

PATIENT
  Age: 50 Year
  Sex: Female
  Weight: 82.55 kg

DRUGS (1)
  1. NIACIN ER [Suspect]
     Active Substance: NIACIN
     Indication: HYPERTRIGLYCERIDAEMIA
     Route: 048
     Dates: start: 2010, end: 2013

REACTIONS (2)
  - Flushing [None]
  - Drug hypersensitivity [None]
